FAERS Safety Report 5651878-5 (Version None)
Quarter: 2008Q1

REPORT INFORMATION
  Report Type: 
  Country: None (occurrence: None)
  Receive Date: 20080304
  Receipt Date: 20080219
  Transmission Date: 20080703
  Serious: Yes (Hospitalization)
  Sender: FDA-Public Use
  Company Number: 023863

PATIENT
  Age: 26 Year
  Sex: Female
  Weight: 45.4 kg

DRUGS (1)
  1. ADDERALL 10 [Suspect]
     Indication: ATTENTION DEFICIT/HYPERACTIVITY DISORDER
     Dosage: ORAL
     Route: 048
     Dates: start: 20020101, end: 20080211

REACTIONS (6)
  - ABNORMAL BEHAVIOUR [None]
  - BIPOLAR DISORDER [None]
  - INADEQUATE DIET [None]
  - INSOMNIA [None]
  - PARANOIA [None]
  - PSYCHOTIC BEHAVIOUR [None]
